FAERS Safety Report 19203562 (Version 2)
Quarter: 2021Q2

REPORT INFORMATION
  Report Type: Spontaneous
  Country: JP (occurrence: JP)
  Receive Date: 20210503
  Receipt Date: 20210507
  Transmission Date: 20210717
  Serious: Yes (Hospitalization, Other)
  Sender: FDA-Public Use
  Company Number: JP-SA-2021SA140844

PATIENT
  Age: 76 Year
  Sex: Female
  Weight: 47 kg

DRUGS (13)
  1. TAKECAB [Concomitant]
     Active Substance: VONOPRAZAN FUMARATE
     Indication: PRODUCT USED FOR UNKNOWN INDICATION
  2. RECALBON [MINODRONIC ACID] [Concomitant]
     Active Substance: MINODRONIC ACID
     Indication: PRODUCT USED FOR UNKNOWN INDICATION
     Dosage: 1.7 MG, QD
     Route: 048
  3. RHEUMATREX [Concomitant]
     Active Substance: METHOTREXATE SODIUM
     Dosage: UNK
     Dates: start: 20050815
  4. VOLTAREN [Concomitant]
     Active Substance: DICLOFENAC SODIUM
     Dosage: UNK
     Dates: start: 20201116
  5. SMYRAF [Suspect]
     Active Substance: PEFICITINIB
     Dosage: 100 MG, QD
     Route: 048
     Dates: start: 20210202
  6. TAKECAB [Concomitant]
     Active Substance: VONOPRAZAN FUMARATE
     Indication: PROPHYLAXIS
     Dosage: 20 MG, QD
     Route: 048
     Dates: start: 20201116
  7. NO PRODUCT [Suspect]
     Active Substance: UNSPECIFIED INGREDIENT
     Dosage: UNK
  8. KEVZARA [Concomitant]
     Active Substance: SARILUMAB
     Dosage: UNK
     Dates: start: 20190513, end: 20201114
  9. MYSLEE [Concomitant]
     Active Substance: ZOLPIDEM TARTRATE
     Dosage: UNK
  10. LOXONIN [Concomitant]
     Active Substance: LOXOPROFEN SODIUM
     Indication: RHEUMATOID ARTHRITIS
     Dosage: 50 MG, QD
     Route: 062
     Dates: start: 20210201
  11. SMYRAF [Suspect]
     Active Substance: PEFICITINIB
     Indication: RHEUMATOID ARTHRITIS
     Dosage: 50 MG, QD
     Route: 048
     Dates: start: 20201116, end: 20210201
  12. XYLOCAINE [Concomitant]
     Active Substance: LIDOCAINE HYDROCHLORIDE
     Dosage: UNK
     Dates: start: 20201005
  13. DECADRON [Concomitant]
     Active Substance: DEXAMETHASONE
     Dosage: UNK
     Dates: start: 20201005

REACTIONS (3)
  - Melaena [Recovering/Resolving]
  - Anal fistula [Unknown]
  - Prescribed underdose [Unknown]

NARRATIVE: CASE EVENT DATE: 20201116
